FAERS Safety Report 17072706 (Version 2)
Quarter: 2019Q4

REPORT INFORMATION
  Report Type: Report from Study
  Country: IN (occurrence: IN)
  Receive Date: 20191125
  Receipt Date: 20191213
  Transmission Date: 20200122
  Serious: Yes (Hospitalization)
  Sender: FDA-Public Use
  Company Number: PHHY2019IN016380

PATIENT
  Age: 55 Year
  Sex: Female
  Weight: 102 kg

DRUGS (5)
  1. ATORVA [Concomitant]
     Indication: PRODUCT USED FOR UNKNOWN INDICATION
     Dosage: 1 DF, QD (AT NIGHT) (0-0-1)
     Route: 048
  2. NOVOMIX 30 [Concomitant]
     Active Substance: INSULIN ASPART
     Indication: PRODUCT USED FOR UNKNOWN INDICATION
     Dosage: (14-0-10)
     Route: 065
  3. INSULIN [Concomitant]
     Active Substance: INSULIN NOS
     Indication: PRODUCT USED FOR UNKNOWN INDICATION
     Dosage: UNK
     Route: 065
     Dates: end: 20190225
  4. GALVUS MET [Suspect]
     Active Substance: METFORMIN HYDROCHLORIDE\VILDAGLIPTIN
     Indication: PRODUCT USED FOR UNKNOWN INDICATION
     Dosage: 1 DF (METFORMIN 500MG, VILDAGLIPTIN 50MG), BID
     Route: 048
  5. GLIMY [Concomitant]
     Indication: PRODUCT USED FOR UNKNOWN INDICATION
     Dosage: 1 DF, QD (1-0-0)
     Route: 048

REACTIONS (47)
  - Hyperglycaemia [Recovered/Resolved]
  - Constipation [Recovered/Resolved]
  - Hyperglycaemia [Recovered/Resolved]
  - Hyperglycaemia [Unknown]
  - Dry mouth [Unknown]
  - Hyperglycaemia [Recovered/Resolved]
  - Gastric pH decreased [Unknown]
  - Pyrexia [Recovered/Resolved]
  - Hyperglycaemia [Recovered/Resolved]
  - Hyperglycaemia [Recovered/Resolved]
  - Abdominal pain upper [Unknown]
  - Abdominal pain [Unknown]
  - Fatigue [Recovered/Resolved]
  - Hyperglycaemia [Recovered/Resolved]
  - Vaginal discharge [Unknown]
  - Somnolence [Recovered/Resolved]
  - Post procedural diarrhoea [Recovered/Resolved]
  - Hypoglycaemia [Recovered/Resolved]
  - Hyperglycaemia [Unknown]
  - Hyperglycaemia [Unknown]
  - Faeces discoloured [Recovered/Resolved]
  - Post procedural swelling [Unknown]
  - Hyperglycaemia [Recovered/Resolved]
  - Arthralgia [Unknown]
  - Hyperglycaemia [Recovered/Resolved]
  - Cholelithiasis [Unknown]
  - Cataract [Unknown]
  - Abdominal pain [Recovered/Resolved]
  - Pollakiuria [Recovered/Resolved]
  - Hyperglycaemia [Recovered/Resolved]
  - Pyrexia [Recovered/Resolved]
  - Food allergy [Unknown]
  - Hyperglycaemia [Recovered/Resolved]
  - Hyperglycaemia [Recovered/Resolved]
  - Hyperglycaemia [Recovered/Resolved]
  - Peripheral swelling [Recovered/Resolved]
  - Hyperglycaemia [Recovered/Resolved]
  - Ulcer [Unknown]
  - Sleep disorder [Recovered/Resolved]
  - Blood glucose increased [Recovered/Resolved]
  - Hyperglycaemia [Recovered/Resolved]
  - Gastric disorder [Unknown]
  - Abdominal pain upper [Recovered/Resolved]
  - Weight decreased [Unknown]
  - Hyperglycaemia [Recovered/Resolved]
  - Pyrexia [Unknown]
  - Mobility decreased [Unknown]

NARRATIVE: CASE EVENT DATE: 20180318
